FAERS Safety Report 8000227-6 (Version None)
Quarter: 2011Q4

REPORT INFORMATION
  Report Type: 
  Country: None (occurrence: None)
  Receive Date: 20111220
  Receipt Date: 20111220
  Transmission Date: 20120403
  Serious: No
  Sender: FDA-Public Use
  Company Number: None

PATIENT
  Sex: Male
  Weight: 113.3993 kg

DRUGS (2)
  1. BUTRANS [Suspect]
     Indication: PAIN
     Dosage: 20 MCG/HR PATCH 1 PATCH PER WEEK TRANSDERMAL
     Route: 062
     Dates: start: 20111001
  2. BUTRANS [Suspect]
     Indication: PAIN
     Dosage: 20 MCG/HR PATCH 1 PATCH PER WEEK TRANSDERMAL
     Route: 062
     Dates: start: 20111101, end: 20111201

REACTIONS (1)
  - DRUG INEFFECTIVE [None]
